FAERS Safety Report 8598934-X (Version None)
Quarter: 2012Q3

REPORT INFORMATION
  Report Type: 
  Country: None (occurrence: None)
  Receive Date: 20120806
  Receipt Date: 20120806
  Transmission Date: 20120928
  Serious: No
  Sender: FDA-Public Use
  Company Number: None

PATIENT
  Age: 44 Year
  Sex: Male
  Weight: 104.3 kg

DRUGS (1)
  1. HYDRALAZINE HCL [Suspect]
     Indication: CHEST PAIN
     Dosage: 20MG X1 IV
     Route: 042

REACTIONS (4)
  - DIZZINESS [None]
  - BLOOD PRESSURE INCREASED [None]
  - NAUSEA [None]
  - HYPERHIDROSIS [None]
